FAERS Safety Report 6753393-4 (Version None)
Quarter: 2010Q2

REPORT INFORMATION
  Report Type: 
  Country: None (occurrence: None)
  Receive Date: 20100520
  Receipt Date: 20090916
  Transmission Date: 20101027
  Serious: Yes (Other)
  Sender: FDA-Public Use
  Company Number: 2009270527

PATIENT
  Age: 61 Year
  Sex: Female
  Weight: 71 kg

DRUGS (7)
  1. PROVERA [Suspect]
     Indication: HORMONE REPLACEMENT THERAPY
     Dosage: 2.5 MG, ORAL
     Route: 048
     Dates: start: 19890101, end: 19970101
  2. MEDROXYPROGESTERONE [Suspect]
     Indication: HORMONE REPLACEMENT THERAPY
     Dates: start: 19890101, end: 19970101
  3. PREMARIN [Suspect]
     Indication: HORMONE REPLACEMENT THERAPY
     Dosage: 0.625 MG, ORAL ; 0.9 MG, ORAL
     Route: 048
     Dates: start: 19890101, end: 19970101
  4. PREMARIN [Suspect]
     Indication: HORMONE REPLACEMENT THERAPY
     Dosage: 0.625 MG, ORAL ; 0.9 MG, ORAL
     Route: 048
     Dates: start: 19890101, end: 19970101
  5. PREMPRO [Suspect]
     Indication: HORMONE REPLACEMENT THERAPY
     Dosage: 0.625/2.5MG, ORAL
     Route: 048
     Dates: start: 19960101, end: 20000101
  6. DILTIAZEM [Concomitant]
  7. FOSINOPRIL SODIUM [Concomitant]

REACTIONS (1)
  - BREAST CANCER FEMALE [None]
